FAERS Safety Report 8364579-X (Version None)
Quarter: 2012Q2

REPORT INFORMATION
  Report Type: 
  Country: None (occurrence: None)
  Receive Date: 20120516
  Receipt Date: 20120508
  Transmission Date: 20120825
  Serious: Yes (Other)
  Sender: FDA-Public Use
  Company Number: US-ASTRAZENECA-2012SE10741

PATIENT
  Age: 63 Year
  Sex: Female
  Weight: 78.5 kg

DRUGS (3)
  1. LIPITOR [Concomitant]
  2. LEVOXYL [Concomitant]
  3. NEXIUM [Suspect]
     Indication: GASTROOESOPHAGEAL REFLUX DISEASE
     Route: 048

REACTIONS (8)
  - BURNING SENSATION [None]
  - DYSPEPSIA [None]
  - INTENTIONAL DRUG MISUSE [None]
  - GASTROOESOPHAGEAL REFLUX DISEASE [None]
  - APHAGIA [None]
  - VOMITING [None]
  - NAUSEA [None]
  - ODYNOPHAGIA [None]
